FAERS Safety Report 20482034 (Version 1)
Quarter: 2022Q1

REPORT INFORMATION
  Report Type: Spontaneous
  Country: PT (occurrence: PT)
  Receive Date: 20220216
  Receipt Date: 20220216
  Transmission Date: 20220424
  Serious: No
  Sender: FDA-Public Use
  Company Number: PT-JAZZ-2021-PT-025673

PATIENT
  Age: 69 Year
  Sex: Male

DRUGS (5)
  1. ZEPZELCA [Suspect]
     Active Substance: LURBINECTEDIN
     Indication: Small cell lung cancer
     Dosage: FREQUENCY: 2ND CYCLE\3.2 MICROGRAM/SQ. METER
     Route: 042
     Dates: start: 20211119
  2. LERCANIDIPINE [Concomitant]
     Active Substance: LERCANIDIPINE
     Indication: Hypertension
     Dosage: FREQUENCY: 2ND CYCLE
  3. TRAZODONE [Concomitant]
     Active Substance: TRAZODONE HYDROCHLORIDE
     Dosage: FREQUENCY: 2ND CYCLE
  4. TIOTROPIUM [Concomitant]
     Active Substance: TIOTROPIUM
     Indication: Chronic obstructive pulmonary disease
     Dosage: FREQUENCY: 2ND CYCLE
  5. INSULIN NOS [Concomitant]
     Active Substance: INSULIN NOS
     Indication: Diabetes mellitus
     Dosage: FREQUENCY: 2ND CYCLE

REACTIONS (1)
  - Infusion site reaction [Recovered/Resolved]

NARRATIVE: CASE EVENT DATE: 20211119
